FAERS Safety Report 13646286 (Version 1)
Quarter: 2017Q2

REPORT INFORMATION
  Report Type: Spontaneous
  Country: US (occurrence: US)
  Receive Date: 20170612
  Receipt Date: 20170612
  Transmission Date: 20170830
  Serious: Yes (Disabling, Other)
  Sender: FDA-Public Use
  Company Number: None

PATIENT
  Age: 65 Year
  Sex: Female
  Weight: 85.5 kg

DRUGS (13)
  1. CHLORTHALIDONE. [Concomitant]
     Active Substance: CHLORTHALIDONE
  2. CRANBERRY. [Concomitant]
     Active Substance: CRANBERRY
  3. FISH OIL [Concomitant]
     Active Substance: FISH OIL
  4. CENTRIM [Concomitant]
  5. COQ 10 [Concomitant]
     Active Substance: UBIDECARENONE
  6. BIOTINE [Concomitant]
     Active Substance: LACTOPEROXIDASE BOVINE\LYSOZYME HYDROCHLORIDE
  7. LOSARTIN [Concomitant]
     Active Substance: LOSARTAN
  8. CITRACAL [Concomitant]
     Active Substance: CALCIUM CITRATE
  9. LEVAQUIN [Suspect]
     Active Substance: LEVOFLOXACIN
     Indication: RESPIRATORY TRACT INFECTION
     Dosage: TWICE A DAY
     Route: 048
     Dates: start: 20070202
  10. VITAMIN C [Concomitant]
     Active Substance: ASCORBIC ACID
  11. GABAPENTIN. [Concomitant]
     Active Substance: GABAPENTIN
  12. ESTRADIOL. [Concomitant]
     Active Substance: ESTRADIOL
  13. RESVERATROL [Concomitant]
     Active Substance: DIETARY SUPPLEMENT\RESVERATROL

REACTIONS (3)
  - Neuropathy peripheral [None]
  - Impaired quality of life [None]
  - Balance disorder [None]

NARRATIVE: CASE EVENT DATE: 20070202
